FAERS Safety Report 9557241 (Version 4)
Quarter: 2013Q4

REPORT INFORMATION
  Report Type: Spontaneous
  Country: US (occurrence: US)
  Receive Date: 20130926
  Receipt Date: 20131021
  Transmission Date: 20140711
  Serious: Yes (Hospitalization, Other)
  Sender: FDA-Public Use
  Company Number: US-PFIZER INC-2013258892

PATIENT
  Age: 24 Year
  Sex: Female

DRUGS (4)
  1. LYRICA [Suspect]
     Indication: CONVULSION
     Dosage: 50 BID
     Route: 048
     Dates: start: 20130908, end: 20130915
  2. LYRICA [Interacting]
     Dosage: UNK, 100 BID
     Route: 048
     Dates: start: 201309, end: 201309
  3. LAMICTAL [Interacting]
     Indication: CONVULSION
     Dosage: 250 MG, 2X/DAY
     Route: 048
     Dates: start: 20130810
  4. PAXIL [Concomitant]
     Dosage: UNK

REACTIONS (5)
  - Drug interaction [Unknown]
  - Convulsion [Recovered/Resolved]
  - Pyrexia [Recovered/Resolved]
  - Apnoea [Unknown]
  - Drug ineffective [Unknown]
